FAERS Safety Report 4471367-3 (Version None)
Quarter: 2004Q4

REPORT INFORMATION
  Report Type: 
  Country: None (occurrence: None)
  Receive Date: 20041006
  Receipt Date: 20040930
  Transmission Date: 20050328
  Serious: Yes (Death)
  Sender: FDA-Public Use
  Company Number: 2004AC00415

PATIENT
  Age: 39 Year
  Sex: Female

DRUGS (3)
  1. AMITRIPTYLINE [Suspect]
  2. FENTANYL [Suspect]
  3. BENZODIAZEPINE [Suspect]

REACTIONS (7)
  - APNOEA [None]
  - BLOOD PRESSURE INCREASED [None]
  - COMA [None]
  - DRUG SCREEN POSITIVE [None]
  - GENERAL PHYSICAL HEALTH DETERIORATION [None]
  - INTENTIONAL MISUSE [None]
  - POSTURING [None]
